FAERS Safety Report 9407088 (Version 1)
Quarter: 2013Q3

REPORT INFORMATION
  Report Type: Spontaneous
  Country: DE (occurrence: DE)
  Receive Date: 20130718
  Receipt Date: 20130718
  Transmission Date: 20140515
  Serious: Yes (Other)
  Sender: FDA-Public Use
  Company Number: DE-ASTELLAS-2013EU006155

PATIENT
  Sex: Male

DRUGS (7)
  1. TACROLIMUS SYSTEMIC [Suspect]
     Indication: LIVER TRANSPLANT
     Dosage: UNK
     Route: 065
  2. TACROLIMUS SYSTEMIC [Suspect]
     Indication: PANCREAS TRANSPLANT
  3. INCIVO [Suspect]
     Indication: HEPATITIS C
     Dosage: UNK
     Route: 048
  4. PEGASYS [Suspect]
     Indication: HEPATITIS C
     Dosage: UNK
     Route: 065
  5. RIBAVIRIN [Suspect]
     Indication: HEPATITIS C
     Dosage: UNK
     Route: 065
  6. VICTRELIS [Suspect]
     Indication: HEPATITIS C
     Dosage: UNK
     Route: 065
  7. SILYBUM MARIANUM SEED [Suspect]
     Indication: HEPATITIS
     Dosage: UNK
     Route: 065

REACTIONS (3)
  - Off label use [Unknown]
  - Renal failure [Not Recovered/Not Resolved]
  - Glomerular filtration rate decreased [Not Recovered/Not Resolved]
